FAERS Safety Report 5664662-3 (Version None)
Quarter: 2008Q1

REPORT INFORMATION
  Report Type: 
  Country: None (occurrence: None)
  Receive Date: 20080314
  Receipt Date: 20080304
  Transmission Date: 20080703
  Serious: Yes (Hospitalization)
  Sender: FDA-Public Use
  Company Number: JP-ROCHE-545097

PATIENT
  Age: 47 Year
  Sex: Male
  Weight: 55 kg

DRUGS (2)
  1. TAMIFLU [Suspect]
     Route: 048
     Dates: start: 20080124, end: 20080124
  2. CALONAL [Concomitant]
     Route: 048
     Dates: start: 20080124, end: 20080124

REACTIONS (8)
  - ABDOMINAL PAIN [None]
  - DIARRHOEA [None]
  - HYPOAESTHESIA [None]
  - INTESTINAL ISCHAEMIA [None]
  - NAUSEA [None]
  - PROTEINURIA [None]
  - VISION BLURRED [None]
  - VISUAL DISTURBANCE [None]
